FAERS Safety Report 4496563-0 (Version None)
Quarter: 2004Q4

REPORT INFORMATION
  Report Type: 
  Country: None (occurrence: None)
  Receive Date: 20041109
  Receipt Date: 20041103
  Transmission Date: 20050328
  Serious: Yes (Life-Threatening)
  Sender: FDA-Public Use
  Company Number: AU-JNJFOC-20041101068

PATIENT
  Age: 94 Year
  Sex: Male

DRUGS (11)
  1. TRAMADOL HCL [Suspect]
     Indication: PAIN
     Route: 049
  2. MORPHINE SULFATE [Suspect]
     Indication: PAIN
     Route: 042
  3. ACETAMINOPHEN W/ CODEINE [Suspect]
     Route: 065
  4. ACETAMINOPHEN W/ CODEINE [Suspect]
     Indication: PAIN
     Route: 065
  5. HALOPERIDOL [Suspect]
     Route: 049
  6. NITRAZEPAM [Suspect]
     Route: 049
  7. OLANZAPINE [Suspect]
     Route: 049
  8. CAPTOPRIL [Concomitant]
  9. THYROXINE [Concomitant]
  10. ALLOPURINOL [Concomitant]
  11. TRIMETHOPRIM [Concomitant]

REACTIONS (4)
  - DEPRESSED LEVEL OF CONSCIOUSNESS [None]
  - DRUG INTERACTION [None]
  - PUPILLARY REFLEX IMPAIRED [None]
  - RESPIRATORY ARREST [None]
